FAERS Safety Report 8811869 (Version 2)
Quarter: 2013Q1

REPORT INFORMATION
  Report Type: Spontaneous
  Country: US (occurrence: US)
  Receive Date: 20120927
  Receipt Date: 20130226
  Transmission Date: 20140127
  Serious: Yes (Other)
  Sender: FDA-Public Use
  Company Number: US-009507513-1209USA007894

PATIENT
  Sex: Female

DRUGS (1)
  1. CORICIDIN HBP COUGH AND COLD [Suspect]
     Indication: EUPHORIC MOOD
     Dosage: 40 DF, BID
     Route: 048
     Dates: start: 1998

REACTIONS (9)
  - Convulsion [Not Recovered/Not Resolved]
  - Blood pressure increased [Unknown]
  - Dependence [Not Recovered/Not Resolved]
  - Euphoric mood [Not Recovered/Not Resolved]
  - Hallucination [Not Recovered/Not Resolved]
  - Memory impairment [Not Recovered/Not Resolved]
  - Fall [Not Recovered/Not Resolved]
  - Overdose [Unknown]
  - Off label use [Unknown]
